FAERS Safety Report 15116106 (Version 1)
Quarter: 2018Q3

REPORT INFORMATION
  Report Type: Spontaneous
  Country: DE (occurrence: DE)
  Receive Date: 20180706
  Receipt Date: 20180706
  Transmission Date: 20181010
  Serious: Yes (Hospitalization, Other)
  Sender: FDA-Public Use
  Company Number: DE-AUROBINDO-AUR-APL-2017-06850

PATIENT
  Age: 35 Year
  Sex: Male

DRUGS (17)
  1. PREGABALIN. [Interacting]
     Active Substance: PREGABALIN
     Indication: PRODUCT USED FOR UNKNOWN INDICATION
     Dosage: INITIAL DOSE 50 MG/24H, FINAL DOSE 150 MG/24H
  2. PREGABALIN. [Interacting]
     Active Substance: PREGABALIN
     Dosage: PREGABALINE TO 300 MG/24 H
     Route: 065
  3. LAMOTRIGINE. [Interacting]
     Active Substance: LAMOTRIGINE
     Dosage: UNK,175MG/24H,
     Route: 065
  4. LAMOTRIGINE. [Interacting]
     Active Substance: LAMOTRIGINE
     Dosage: UNK, REDUCED TO 50 MG/24 H
     Route: 065
  5. VALPROIC ACID. [Interacting]
     Active Substance: VALPROIC ACID
     Indication: PRODUCT USED FOR UNKNOWN INDICATION
     Dosage: 1500 MG/24 H GRADUALLY INCREASED TO 2000 MG/24 H
     Route: 065
  6. LORAZEPAM. [Concomitant]
     Active Substance: LORAZEPAM
     Indication: SEIZURE
     Dosage: 3 MG, UNK(FOR 24HOURS)
     Route: 065
  7. TRIMIPRAMINE [Concomitant]
     Active Substance: TRIMIPRAMINE
     Indication: PRODUCT USED FOR UNKNOWN INDICATION
     Dosage: 150 MG, UNK
     Route: 065
  8. PROMETHAZINE [Concomitant]
     Active Substance: PROMETHAZINE\PROMETHAZINE HYDROCHLORIDE
     Indication: PRODUCT USED FOR UNKNOWN INDICATION
     Dosage: 300 MG, UNK
  9. PANTOPRAZOLE [Concomitant]
     Active Substance: PANTOPRAZOLE
     Indication: PRODUCT USED FOR UNKNOWN INDICATION
     Dosage: 20 MG, UNK
     Route: 065
  10. LAMOTRIGINE. [Suspect]
     Active Substance: LAMOTRIGINE
     Indication: PRODUCT USED FOR UNKNOWN INDICATION
     Dosage: 250 MG/24 H GRADUALLY DECREASED TO 25 MG/24 H
  11. LAMOTRIGINE. [Interacting]
     Active Substance: LAMOTRIGINE
     Dosage: UNK, RESTARTED WITH 200 MG/24 H
     Route: 065
  12. LAMOTRIGINE. [Interacting]
     Active Substance: LAMOTRIGINE
     Dosage: UNK, 100 MG/24 H,
     Route: 065
  13. PREGABALIN. [Interacting]
     Active Substance: PREGABALIN
     Dosage: UNK, INCREASED TO 100MG
     Route: 065
  14. VALPROIC ACID. [Interacting]
     Active Substance: VALPROIC ACID
     Dosage: 1800 MG/24 H
     Route: 065
  15. VALPROIC ACID. [Interacting]
     Active Substance: VALPROIC ACID
     Dosage: AISED TO 2000 MG/24 H,
     Route: 065
  16. PREGABALIN. [Interacting]
     Active Substance: PREGABALIN
     Dosage: DECREASED TO 150MG/24H
     Route: 065
  17. LAMOTRIGINE. [Interacting]
     Active Substance: LAMOTRIGINE
     Dosage: REDUCED TO 25 MG/24 H
     Route: 065

REACTIONS (4)
  - Vomiting [Recovering/Resolving]
  - Drug interaction [Unknown]
  - Seizure [Recovering/Resolving]
  - Condition aggravated [Unknown]
